FAERS Safety Report 24935335 (Version 5)
Quarter: 2025Q3

REPORT INFORMATION
  Report Type: Report from Study
  Country: US (occurrence: US)
  Receive Date: 20250206
  Receipt Date: 20250701
  Transmission Date: 20251020
  Serious: No
  Sender: SUNOVION
  Company Number: US-SUMITOMO PHARMA SWITZERLAND GMBH-2025SPA001008

PATIENT

DRUGS (8)
  1. ORGOVYX [Suspect]
     Active Substance: RELUGOLIX
     Indication: Prostate cancer
     Route: 048
     Dates: start: 20250116, end: 20250116
  2. ORGOVYX [Suspect]
     Active Substance: RELUGOLIX
     Dosage: 120 MG, QD
     Route: 048
     Dates: start: 20250117
  3. PREDNISONE [Suspect]
     Active Substance: PREDNISONE
     Indication: Fatigue
     Route: 065
     Dates: start: 20250320
  4. PREDNISONE [Suspect]
     Active Substance: PREDNISONE
     Indication: Arthralgia
  5. ETODOLAC [Concomitant]
     Active Substance: ETODOLAC
     Indication: Osteoarthritis
     Dosage: 400 MG, QD
     Route: 048
     Dates: start: 20250116, end: 20250320
  6. FLOMAX [Concomitant]
     Active Substance: TAMSULOSIN HYDROCHLORIDE
     Route: 065
  7. ASPIRIN [Concomitant]
     Active Substance: ASPIRIN
     Dosage: 81 MG, QD
     Route: 048
  8. VALSARTAN [Concomitant]
     Active Substance: VALSARTAN
     Dosage: 160 MG, QD
     Route: 048
     Dates: start: 20181023

REACTIONS (12)
  - Blood pressure abnormal [Unknown]
  - Prostatic specific antigen increased [Unknown]
  - Skin discolouration [Unknown]
  - Glycosylated haemoglobin increased [Unknown]
  - Pollakiuria [Unknown]
  - Micturition urgency [Unknown]
  - Blood testosterone abnormal [Unknown]
  - Weight increased [Not Recovered/Not Resolved]
  - Haemoglobin decreased [Unknown]
  - Arthralgia [Recovered/Resolved]
  - Fatigue [Not Recovered/Not Resolved]
  - Hot flush [Not Recovered/Not Resolved]

NARRATIVE: CASE EVENT DATE: 20250201
